FAERS Safety Report 9774593 (Version 3)
Quarter: 2014Q1

REPORT INFORMATION
  Report Type: Spontaneous
  Country: SE (occurrence: SE)
  Receive Date: 20131220
  Receipt Date: 20140306
  Transmission Date: 20141002
  Serious: Yes (Hospitalization, Other)
  Sender: FDA-Public Use
  Company Number: SE-SA-2013SA132111

PATIENT
  Age: 76 Year
  Sex: Male

DRUGS (9)
  1. CLIKSTAR [Suspect]
     Indication: DEVICE THERAPY
  2. LANTUS [Suspect]
     Indication: TYPE 1 DIABETES MELLITUS
     Dosage: DOSE:32 UNIT(S)
     Route: 058
  3. NOVORAPID [Concomitant]
     Indication: TYPE 1 DIABETES MELLITUS
  4. TROMBYL [Concomitant]
  5. IMDUR [Concomitant]
  6. FURIX [Concomitant]
  7. METOPROLOL [Concomitant]
  8. ATORVASTATIN [Concomitant]
  9. OXYCONTIN [Concomitant]

REACTIONS (5)
  - Acidosis [Recovered/Resolved]
  - Nausea [Recovered/Resolved]
  - Abdominal pain upper [Recovered/Resolved]
  - Feeling abnormal [Recovered/Resolved]
  - Blood glucose increased [Recovered/Resolved]
